FAERS Safety Report 8502701-2 (Version None)
Quarter: 2012Q3

REPORT INFORMATION
  Report Type: 
  Country: None (occurrence: None)
  Receive Date: 20120706
  Receipt Date: 20120706
  Transmission Date: 20120928
  Serious: No
  Sender: FDA-Public Use
  Company Number: None

PATIENT

DRUGS (1)
  1. TEFLARO [Suspect]
     Dosage: INJECTABLE INTRAVENOUS INFUSION

REACTIONS (3)
  - PRODUCT LABEL ISSUE [None]
  - MEDICATION ERROR [None]
  - CIRCUMSTANCE OR INFORMATION CAPABLE OF LEADING TO MEDICATION ERROR [None]
